FAERS Safety Report 23303917 (Version 5)
Quarter: 2024Q4

REPORT INFORMATION
  Report Type: Spontaneous
  Country: US (occurrence: US)
  Receive Date: 20231215
  Receipt Date: 20241011
  Transmission Date: 20250115
  Serious: No
  Sender: PFIZER
  Company Number: US-PFIZER INC-PV202300198119

PATIENT
  Age: 49 Year
  Sex: Female

DRUGS (1)
  1. IBRANCE [Suspect]
     Active Substance: PALBOCICLIB
     Dosage: 125 MG

REACTIONS (11)
  - Fatigue [Unknown]
  - Hot flush [Unknown]
  - Cough [Unknown]
  - Constipation [Unknown]
  - Epistaxis [Unknown]
  - Insomnia [Unknown]
  - Back pain [Unknown]
  - Skin lesion [Unknown]
  - Respiration abnormal [Unknown]
  - Lung disorder [Unknown]
  - Product dose omission issue [Unknown]

NARRATIVE: CASE EVENT DATE: 20231101
